FAERS Safety Report 6182881-7 (Version None)
Quarter: 2009Q2

REPORT INFORMATION
  Report Type: 
  Country: None (occurrence: None)
  Receive Date: 20090507
  Receipt Date: 20090427
  Transmission Date: 20091009
  Serious: Yes (Disabling, Other)
  Sender: FDA-Public Use
  Company Number: US-BAYER-200919618NA

PATIENT
  Sex: Male

DRUGS (3)
  1. MAGNEVIST [Suspect]
     Indication: NUCLEAR MAGNETIC RESONANCE IMAGING
     Dates: start: 20060919, end: 20060919
  2. MAGNEVIST [Suspect]
     Dates: start: 20060921, end: 20060921
  3. OMNISCAN [Suspect]
     Indication: NUCLEAR MAGNETIC RESONANCE IMAGING
     Dates: start: 20060316, end: 20060316

REACTIONS (16)
  - ABASIA [None]
  - ANHEDONIA [None]
  - ANXIETY [None]
  - DEFORMITY [None]
  - DRY SKIN [None]
  - DYSSTASIA [None]
  - EMOTIONAL DISTRESS [None]
  - INSOMNIA [None]
  - MOBILITY DECREASED [None]
  - NEPHROGENIC SYSTEMIC FIBROSIS [None]
  - PAIN [None]
  - PRURITUS [None]
  - SCAR [None]
  - SKIN EXFOLIATION [None]
  - SKIN HYPERTROPHY [None]
  - SWELLING [None]
